FAERS Safety Report 8740865 (Version 2)
Quarter: 2013Q4

REPORT INFORMATION
  Report Type: Report from Study
  Country: US (occurrence: US)
  Receive Date: 20120823
  Receipt Date: 20131105
  Transmission Date: 20140711
  Serious: Yes (Hospitalization)
  Sender: FDA-Public Use
  Company Number: US-009507513-1208USA007188

PATIENT
  Sex: Female

DRUGS (4)
  1. VICTRELIS [Suspect]
     Indication: CHRONIC HEPATITIS C
     Dosage: 4 DF, TID
     Route: 048
     Dates: start: 20111111
  2. PEGASYS [Suspect]
     Indication: CHRONIC HEPATITIS
     Dosage: 180 MICROGRAM, QW
     Dates: start: 20111007
  3. RIBAPAK [Suspect]
     Indication: CHRONIC HEPATITIS C
     Dosage: 1200 MG, QD
     Dates: start: 20111007
  4. INSULIN [Concomitant]
     Indication: TYPE 1 DIABETES MELLITUS

REACTIONS (7)
  - Blood glucose decreased [Unknown]
  - Blood glucose fluctuation [Unknown]
  - Red blood cell count decreased [Unknown]
  - Insomnia [Unknown]
  - Dry skin [Unknown]
  - Skin fissures [Unknown]
  - Decreased appetite [Unknown]
